FAERS Safety Report 19954716 (Version 4)
Quarter: 2022Q1

REPORT INFORMATION
  Report Type: Spontaneous
  Country: US (occurrence: US)
  Receive Date: 20211014
  Receipt Date: 20220214
  Transmission Date: 20220423
  Serious: Yes (Other)
  Sender: FDA-Public Use
  Company Number: US-PFIZER INC-202101326723

PATIENT
  Age: 69 Year
  Sex: Male
  Weight: 90.703 kg

DRUGS (15)
  1. IBRANCE [Suspect]
     Active Substance: PALBOCICLIB
     Indication: Liposarcoma
     Dosage: 125 MG, CYCLIC (125MG BY MOUTH DAYS 1 THROUGH 21 EVERY 28 DAYS)
     Route: 048
     Dates: start: 20210814
  2. IBRANCE [Suspect]
     Active Substance: PALBOCICLIB
     Dosage: 125 MG, CYCLIC (DAILY ON DAYS 1 THROUGH 21 EVERY 28 DAYS)
     Route: 048
     Dates: start: 20210914
  3. ATORVASTATIN CALCIUM [Concomitant]
     Active Substance: ATORVASTATIN CALCIUM
     Dosage: UNK
  4. BYSTOLIC [Concomitant]
     Active Substance: NEBIVOLOL HYDROCHLORIDE
     Dosage: UNK
  5. CELEBREX [Concomitant]
     Active Substance: CELECOXIB
     Dosage: UNK
  6. FENOFIBRIC ACID [Concomitant]
     Active Substance: FENOFIBRIC ACID
     Dosage: UNK
  7. FUROSEMIDE [Concomitant]
     Active Substance: FUROSEMIDE
     Dosage: UNK
  8. LANSOPRAZOLE [Concomitant]
     Active Substance: LANSOPRAZOLE
     Dosage: UNK
  9. ASPIRIN [Concomitant]
     Active Substance: ASPIRIN
     Dosage: UNK (LOW DOSE)
  10. PROSCAR [Concomitant]
     Active Substance: FINASTERIDE
     Dosage: UNK
  11. SULAR [Concomitant]
     Active Substance: NISOLDIPINE
     Dosage: UNK
  12. TAMSULOSIN HYDROCHLORIDE [Concomitant]
     Active Substance: TAMSULOSIN HYDROCHLORIDE
     Dosage: UNK
  13. VASCEPA [Concomitant]
     Active Substance: ICOSAPENT ETHYL
     Dosage: UNK
  14. ACETAMINOPHEN\HYDROCODONE [Concomitant]
     Active Substance: ACETAMINOPHEN\HYDROCODONE
     Dosage: UNK
  15. FLONASE ALLERGY RELIEF [Concomitant]
     Active Substance: FLUTICASONE PROPIONATE
     Dosage: UNK

REACTIONS (18)
  - Renal impairment [Unknown]
  - Pain [Unknown]
  - Sinusitis [Not Recovered/Not Resolved]
  - White blood cell count decreased [Unknown]
  - Blood pressure abnormal [Unknown]
  - Dizziness [Unknown]
  - Oropharyngeal pain [Unknown]
  - Skin injury [Unknown]
  - Pruritus [Unknown]
  - Skin weeping [Unknown]
  - Fatigue [Not Recovered/Not Resolved]
  - Decreased appetite [Not Recovered/Not Resolved]
  - Alopecia [Not Recovered/Not Resolved]
  - Nasal congestion [Unknown]
  - Weight decreased [Not Recovered/Not Resolved]
  - Hypotension [Unknown]
  - Balance disorder [Unknown]
  - Off label use [Unknown]
